FAERS Safety Report 12999188 (Version 3)
Quarter: 2017Q1

REPORT INFORMATION
  Report Type: Spontaneous
  Country: US (occurrence: US)
  Receive Date: 20161205
  Receipt Date: 20170125
  Transmission Date: 20170428
  Serious: No
  Sender: FDA-Public Use
  Company Number: US-GLAXOSMITHKLINE-US2016178245

PATIENT
  Age: 83 Year
  Sex: Female
  Weight: 63.39 kg

DRUGS (7)
  1. VENTOLIN HFA [Suspect]
     Active Substance: ALBUTEROL SULFATE
     Indication: WHEEZING
     Dosage: 2 PUFF(S), BID
     Route: 048
     Dates: start: 20161129
  2. ASPIRIN 81 [Concomitant]
     Active Substance: ASPIRIN
  3. LISINOPRIL. [Concomitant]
     Active Substance: LISINOPRIL
  4. PRAVASTATIN. [Concomitant]
     Active Substance: PRAVASTATIN
  5. VENTOLIN HFA [Suspect]
     Active Substance: ALBUTEROL SULFATE
     Dosage: 2 PUFF(S), QID PRN
  6. METOPROLOL. [Concomitant]
     Active Substance: METOPROLOL
  7. AMLODIPINE [Concomitant]
     Active Substance: AMLODIPINE BESYLATE

REACTIONS (5)
  - Headache [Recovered/Resolved]
  - Chest discomfort [Recovering/Resolving]
  - Dizziness [Recovered/Resolved]
  - Back pain [Recovered/Resolved]
  - Asthenia [Recovering/Resolving]

NARRATIVE: CASE EVENT DATE: 20161129
